FAERS Safety Report 12934364 (Version 1)
Quarter: 2016Q4

REPORT INFORMATION
  Report Type: Spontaneous
  Country: None (occurrence: US)
  Receive Date: 20161111
  Receipt Date: 20161111
  Transmission Date: 20170207
  Serious: Yes (Life-Threatening, Hospitalization, Other)
  Sender: FDA-Public Use
  Company Number: US-SAOL THERAPEUTICS-2016SAO01020

PATIENT
  Sex: Female

DRUGS (2)
  1. PRIALT [Suspect]
     Active Substance: ZICONOTIDE ACETATE
     Dosage: 3.46 ?G, \DAY
     Route: 037
  2. LIORESAL [Suspect]
     Active Substance: BACLOFEN
     Indication: MUSCLE SPASTICITY
     Dosage: 914 ?G, \DAY
     Route: 037
     Dates: end: 20160106

REACTIONS (4)
  - Malaise [Recovering/Resolving]
  - Medical device site abscess [Recovered/Resolved]
  - Decubitus ulcer [Recovered/Resolved]
  - Osteomyelitis [Unknown]

NARRATIVE: CASE EVENT DATE: 2012
